FAERS Safety Report 4830076-9 (Version None)
Quarter: 2005Q4

REPORT INFORMATION
  Report Type: 
  Country: None (occurrence: None)
  Receive Date: 20051114
  Receipt Date: 20051101
  Transmission Date: 20060501
  Serious: Yes (Other)
  Sender: FDA-Public Use
  Company Number: 2005048736

PATIENT
  Age: 72 Year
  Sex: Female
  Weight: 70 kg

DRUGS (4)
  1. ATORVASTATIN CALCIUM [Suspect]
     Indication: HYPERCHOLESTEROLAEMIA
     Dosage: (10 MG), ORAL
     Route: 048
     Dates: start: 20040721, end: 20041222
  2. ATENOLOL [Suspect]
     Indication: HYPERTENSION
     Dosage: (100 MG), ORAL
     Route: 048
     Dates: start: 20000101
  3. DILTIAZEM [Suspect]
     Indication: HYPERTENSION
     Dosage: (120 MG), ORAL
     Route: 048
     Dates: start: 20040601
  4. LEVODOPA W/BENSERAZIDE/ (BENSERAZIDE LEVODOPA) [Suspect]
     Indication: TREMOR
     Dosage: 25/100 MILLIGRAMS, ORAL
     Route: 048
     Dates: start: 19990101

REACTIONS (3)
  - CONDITION AGGRAVATED [None]
  - DRUG INTERACTION [None]
  - INTENTION TREMOR [None]
